FAERS Safety Report 6838249-0 (Version None)
Quarter: 2010Q3

REPORT INFORMATION
  Report Type: 
  Country: None (occurrence: None)
  Receive Date: 20100713
  Receipt Date: 20070605
  Transmission Date: 20110219
  Serious: No
  Sender: FDA-Public Use
  Company Number: US-PFIZER INC-2007047937

PATIENT
  Sex: Female
  Weight: 59.09 kg

DRUGS (6)
  1. CHANTIX [Suspect]
     Indication: SMOKING CESSATION THERAPY
     Dates: start: 20070604
  2. ADVAIR DISKUS 100/50 [Concomitant]
  3. XOPENEX [Concomitant]
  4. SPIRIVA [Concomitant]
  5. ULTRAM [Concomitant]
     Indication: MYALGIA
  6. WELLBUTRIN [Concomitant]
     Indication: SMOKING CESSATION THERAPY

REACTIONS (6)
  - AGITATION [None]
  - ANXIETY [None]
  - CHEST PAIN [None]
  - INSOMNIA [None]
  - IRRITABILITY [None]
  - NAUSEA [None]
